FAERS Safety Report 6670153-3 (Version None)
Quarter: 2010Q2

REPORT INFORMATION
  Report Type: 
  Country: None (occurrence: None)
  Receive Date: 20100406
  Receipt Date: 20100302
  Transmission Date: 20101027
  Serious: No
  Sender: FDA-Public Use
  Company Number: US-ALLERGAN-1002694US

PATIENT
  Age: 64 Year
  Sex: Female

DRUGS (2)
  1. LATISSE [Suspect]
     Indication: GROWTH OF EYELASHES
     Dosage: 1 GTT, QHS
     Dates: start: 20100201
  2. CLEAR EYES                         /00419602/ [Concomitant]

REACTIONS (4)
  - DRY EYE [None]
  - DRY SKIN [None]
  - EYE PRURITUS [None]
  - INCORRECT DOSE ADMINISTERED [None]
